FAERS Safety Report 25920279 (Version 1)
Quarter: 2025Q4

REPORT INFORMATION
  Report Type: Spontaneous
  Country: CA (occurrence: CA)
  Receive Date: 20251014
  Receipt Date: 20251014
  Transmission Date: 20260118
  Serious: Yes (Death)
  Sender: SANDOZ
  Company Number: CA-SANDOZ-SDZ2025CA075677

PATIENT
  Age: 73 Year
  Sex: Male

DRUGS (4)
  1. ARIPIPRAZOLE [Suspect]
     Active Substance: ARIPIPRAZOLE
     Indication: Product used for unknown indication
     Dosage: UNK
     Route: 065
  2. HALOPERIDOL [Suspect]
     Active Substance: HALOPERIDOL
     Indication: Product used for unknown indication
     Dosage: UNK
     Route: 065
  3. OLANZAPINE [Suspect]
     Active Substance: OLANZAPINE
     Indication: Product used for unknown indication
     Dosage: UNK
     Route: 065
  4. SERTRALINE HYDROCHLORIDE [Suspect]
     Active Substance: SERTRALINE HYDROCHLORIDE
     Indication: Product used for unknown indication
     Dosage: CAPSULE FORMULATION
     Route: 065

REACTIONS (9)
  - Resuscitation [Fatal]
  - Vomiting [Fatal]
  - Accidental death [Fatal]
  - Cardiac arrest [Fatal]
  - Cardio-respiratory arrest [Fatal]
  - Loss of consciousness [Fatal]
  - Muscle rigidity [Fatal]
  - Neuroleptic malignant syndrome [Fatal]
  - Serotonin syndrome [Fatal]
